FAERS Safety Report 25408505 (Version 2)
Quarter: 2025Q4

REPORT INFORMATION
  Report Type: Report from Study
  Country: JP (occurrence: JP)
  Receive Date: 20250606
  Receipt Date: 20251022
  Transmission Date: 20260117
  Serious: Yes (Other)
  Sender: GILEAD
  Company Number: JP-GILEAD-2025-0715905

PATIENT
  Age: 7 Decade
  Sex: Male

DRUGS (1)
  1. AXICABTAGENE CILOLEUCEL [Suspect]
     Active Substance: AXICABTAGENE CILOLEUCEL
     Indication: Diffuse large B-cell lymphoma recurrent
     Dosage: UNK
     Route: 041

REACTIONS (4)
  - Autonomic neuropathy [Recovering/Resolving]
  - Human herpesvirus 6 encephalitis [Unknown]
  - Mental impairment [Not Recovered/Not Resolved]
  - Immune effector cell-associated neurotoxicity syndrome [Recovering/Resolving]
